FAERS Safety Report 25614469 (Version 2)
Quarter: 2025Q3

REPORT INFORMATION
  Report Type: Spontaneous
  Country: JP (occurrence: JP)
  Receive Date: 20250729
  Receipt Date: 20250829
  Transmission Date: 20251021
  Serious: Yes (Hospitalization, Other)
  Sender: NOVO NORDISK
  Company Number: JP-NOVOPROD-1482600

PATIENT
  Age: 57 Year

DRUGS (3)
  1. WEGOVY [Suspect]
     Active Substance: SEMAGLUTIDE
     Indication: Obesity
     Route: 058
     Dates: start: 202505
  2. WEGOVY [Suspect]
     Active Substance: SEMAGLUTIDE
     Dosage: 2.40 MG, QW
     Route: 058
     Dates: start: 202506
  3. WEGOVY [Suspect]
     Active Substance: SEMAGLUTIDE
     Dosage: 1.7 MG, QW
     Route: 058
     Dates: start: 202505

REACTIONS (3)
  - Cholangitis [Recovered/Resolved]
  - Orthostatic hypotension [Unknown]
  - Fracture [Unknown]

NARRATIVE: CASE EVENT DATE: 20250601
